FAERS Safety Report 4897440-3 (Version None)
Quarter: 2006Q1

REPORT INFORMATION
  Report Type: 
  Country: None (occurrence: None)
  Receive Date: 20060130
  Receipt Date: 20060130
  Transmission Date: 20060701
  Serious: Yes (Other)
  Sender: FDA-Public Use
  Company Number: None

PATIENT
  Age: 49 Year
  Sex: Female
  Weight: 56.6996 kg

DRUGS (2)
  1. ZICAM MATRIXX INITIATIVES INC. [Suspect]
     Indication: NASAL CONGESTION
     Dosage: 2 SPRAYS PER NOSTRIL ONE TIME ONLY NASAL
     Route: 045
     Dates: start: 20060102, end: 20060102
  2. ZICAM MATRIXX INITIATIVES INC. [Suspect]
     Indication: NASOPHARYNGITIS
     Dosage: 2 SPRAYS PER NOSTRIL ONE TIME ONLY NASAL
     Route: 045
     Dates: start: 20060102, end: 20060102

REACTIONS (2)
  - AGEUSIA [None]
  - ANOSMIA [None]
